FAERS Safety Report 17465937 (Version 2)
Quarter: 2020Q1

REPORT INFORMATION
  Report Type: Report from Study
  Country: JP (occurrence: JP)
  Receive Date: 20200227
  Receipt Date: 20200302
  Transmission Date: 20200409
  Serious: Yes (Life-Threatening, Other)
  Sender: FDA-Public Use
  Company Number: JP-ROCHE-1976007

PATIENT
  Sex: Female

DRUGS (3)
  1. DEXAMETHASONE. [Concomitant]
     Active Substance: DEXAMETHASONE
  2. BEVACIZUMAB. [Suspect]
     Active Substance: BEVACIZUMAB
     Indication: OVARIAN EPITHELIAL CANCER RECURRENT
     Dosage: ON DAY 1
     Route: 042
  3. GEMCITABINE. [Suspect]
     Active Substance: GEMCITABINE
     Indication: OVARIAN EPITHELIAL CANCER RECURRENT
     Dosage: ON DAYS 1AND 8 EVERY 3 WEEKS
     Route: 042

REACTIONS (12)
  - Hypertension [Unknown]
  - Peripheral sensory neuropathy [Unknown]
  - Interstitial lung disease [Unknown]
  - Proteinuria [Unknown]
  - Pulmonary embolism [Unknown]
  - Aspartate aminotransferase [Unknown]
  - Nausea [Unknown]
  - Alanine aminotransferase [Unknown]
  - Thrombocytopenia [Unknown]
  - Anaemia [Unknown]
  - Neutropenia [Unknown]
  - Epistaxis [Unknown]
